FAERS Safety Report 6064069-3 (Version None)
Quarter: 2009Q1

REPORT INFORMATION
  Report Type: 
  Country: None (occurrence: None)
  Receive Date: 20090204
  Receipt Date: 20090120
  Transmission Date: 20090719
  Serious: Yes (Hospitalization)
  Sender: FDA-Public Use
  Company Number: AT-BIOGENIDEC-2008BI028712

PATIENT
  Age: 47 Year
  Sex: Female
  Weight: 62 kg

DRUGS (4)
  1. TYSABRI [Suspect]
     Indication: MULTIPLE SCLEROSIS
     Route: 042
     Dates: start: 20080430
  2. ESCITALOPRAM [Concomitant]
  3. BACLOFEN [Concomitant]
  4. METHYLPREDNISOLONE [Concomitant]
     Route: 042

REACTIONS (2)
  - ANKLE FRACTURE [None]
  - FALL [None]
